FAERS Safety Report 13644168 (Version 1)
Quarter: 2017Q2

REPORT INFORMATION
  Report Type: Spontaneous
  Country: US (occurrence: US)
  Receive Date: 20170612
  Receipt Date: 20170612
  Transmission Date: 20170830
  Serious: Yes (Death, Life-Threatening, Hospitalization, Other)
  Sender: FDA-Public Use
  Company Number: US-ACTELION-A-NJ2017-154925

PATIENT
  Age: 74 Year
  Sex: Female

DRUGS (2)
  1. OPSUMIT [Suspect]
     Active Substance: MACITENTAN
     Indication: PULMONARY ARTERIAL HYPERTENSION
     Dosage: 10 MG, QD
     Route: 048
     Dates: end: 20170429
  2. LETAIRIS [Concomitant]
     Active Substance: AMBRISENTAN
     Dosage: UNK
     Dates: start: 20111014, end: 20170417

REACTIONS (4)
  - Pulmonary arterial hypertension [Fatal]
  - Subdural haematoma [Fatal]
  - Respiratory failure [Fatal]
  - Hypoxia [Fatal]

NARRATIVE: CASE EVENT DATE: 20170405
